FAERS Safety Report 20180112 (Version 1)
Quarter: 2021Q4

REPORT INFORMATION
  Report Type: Spontaneous
  Country: US (occurrence: US)
  Receive Date: 20211214
  Receipt Date: 20211214
  Transmission Date: 20220303
  Serious: Yes (Hospitalization)
  Sender: FDA-Public Use
  Company Number: US-STRIDES ARCOLAB LIMITED-2021SP029021

PATIENT
  Age: 48 Year
  Sex: Male

DRUGS (1)
  1. PREDNISONE [Suspect]
     Active Substance: PREDNISONE
     Indication: Organising pneumonia
     Dosage: UNK, MODERATE OVER 6 MONTHS
     Route: 065

REACTIONS (3)
  - Diabetes mellitus [Recovered/Resolved]
  - Coccidioidomycosis [Recovered/Resolved]
  - Pneumonia [Recovered/Resolved]
